FAERS Safety Report 8961455 (Version 1)
Quarter: 2012Q4

REPORT INFORMATION
  Report Type: 
  Country: US (occurrence: US)
  Receive Date: 20121213
  Receipt Date: 20121213
  Transmission Date: 20130627
  Serious: No
  Sender: FDA-Public Use
  Company Number: US-ALLERGAN-1201918US

PATIENT
  Age: 30 Year
  Sex: Female

DRUGS (4)
  1. ACZONE [Suspect]
     Indication: ACNE
     Route: 061
  2. CITALOPRAM                         /00582602/ [Concomitant]
     Dosage: 20 mg, UNK
  3. BPO WASH 4% [Concomitant]
     Dosage: UNK
  4. RETIN A MICRO 0.04% [Concomitant]
     Dosage: UNK

REACTIONS (1)
  - Dry skin [Recovered/Resolved]
